FAERS Safety Report 7717786-0 (Version None)
Quarter: 2011Q3

REPORT INFORMATION
  Report Type: 
  Country: None (occurrence: None)
  Receive Date: 20110824
  Receipt Date: 20110812
  Transmission Date: 20111222
  Serious: Yes (Hospitalization)
  Sender: FDA-Public Use
  Company Number: CIP11000589

PATIENT
  Sex: Female
  Weight: 55.8 kg

DRUGS (24)
  1. HERBAL PREPARATION [Concomitant]
  2. ACTONEL [Suspect]
     Indication: OSTEOPOROSIS
     Dosage: 5 MG, ORAL
     Route: 048
     Dates: start: 20030507, end: 20051001
  3. ACTONEL [Suspect]
     Indication: OSTEOPENIA
     Dosage: 5 MG, ORAL
     Route: 048
     Dates: start: 20030507, end: 20051001
  4. ALLEGRA /01314201/ (FEXOFENADINE) [Concomitant]
  5. VITAMIN E /00110501/ (TOCOPHEROL) [Concomitant]
  6. ECHINACEA /01323501/ (ECHINACEA PURPUREA) [Concomitant]
  7. ADVIL /00109201/ (IBUPROFEN) [Concomitant]
  8. ALBUTEROL [Concomitant]
  9. TRIAMCINOLONE [Concomitant]
  10. GINKO BILOBA (GINKGO BILOBA) [Concomitant]
  11. VIOXX [Concomitant]
  12. CALCIUM CARBONATE [Concomitant]
  13. BLACK COHOSH /01456805/ (CIMICIFUGA RACEMOSA ROOT) [Concomitant]
  14. GLUCOSAMINE (GLUCOSAMINE) [Concomitant]
  15. LACTAID (TILACTASE) [Concomitant]
  16. FOSAMAX [Suspect]
     Indication: OSTEOPENIA
     Dosage: ORAL ; 70 MG ONCE WEEKLY, ORAL
     Route: 048
     Dates: start: 20020830, end: 20021106
  17. FOSAMAX [Suspect]
     Indication: OSTEOPOROSIS
     Dosage: ORAL ; 70 MG ONCE WEEKLY, ORAL
     Route: 048
     Dates: start: 20020830, end: 20021106
  18. FOSAMAX [Suspect]
     Indication: OSTEOPENIA
     Dosage: ORAL ; 70 MG ONCE WEEKLY, ORAL
     Route: 048
     Dates: start: 20051001, end: 20090301
  19. FOSAMAX [Suspect]
     Indication: OSTEOPOROSIS
     Dosage: ORAL ; 70 MG ONCE WEEKLY, ORAL
     Route: 048
     Dates: start: 20051001, end: 20090301
  20. BETA CAROTENE (BETACAROTENE) [Concomitant]
  21. FLONASE [Concomitant]
  22. VITAMIN C /00008001/ (ASCORBIC ACID) [Concomitant]
  23. ADVAIR HFA [Concomitant]
  24. FLOVENT [Concomitant]

REACTIONS (6)
  - FEMUR FRACTURE [None]
  - LOW TURNOVER OSTEOPATHY [None]
  - ASTHENIA [None]
  - BONE DISORDER [None]
  - STRESS FRACTURE [None]
  - PAIN [None]
